FAERS Safety Report 13684950 (Version 1)
Quarter: 2017Q2

REPORT INFORMATION
  Report Type: Spontaneous
  Country: US (occurrence: US)
  Receive Date: 20170623
  Receipt Date: 20170623
  Transmission Date: 20170830
  Serious: No
  Sender: FDA-Public Use
  Company Number: US-TEVA-720068ACC

PATIENT
  Age: 65 Year
  Sex: Female
  Weight: 45 kg

DRUGS (3)
  1. ZALEPLON. [Suspect]
     Active Substance: ZALEPLON
     Indication: INSOMNIA
     Dates: start: 20161207, end: 20161216
  2. PROTONIX [Concomitant]
     Active Substance: PANTOPRAZOLE SODIUM
     Dosage: 40 MILLIGRAM DAILY;
  3. TOPAMAX [Concomitant]
     Active Substance: TOPIRAMATE
     Dosage: 100 MILLIGRAM DAILY;

REACTIONS (2)
  - Headache [Not Recovered/Not Resolved]
  - Migraine [Unknown]

NARRATIVE: CASE EVENT DATE: 20161208
